FAERS Safety Report 5243839-5 (Version None)
Quarter: 2007Q1

REPORT INFORMATION
  Report Type: 
  Country: None (occurrence: None)
  Receive Date: 20070220
  Receipt Date: 20070220
  Transmission Date: 20070707
  Serious: Yes (Death)
  Sender: FDA-Public Use
  Company Number: None

PATIENT
  Sex: Female

DRUGS (19)
  1. OXALIPLATIN [Suspect]
     Indication: LUNG ADENOCARCINOMA STAGE IV
     Dosage: 156 MG IV EVERY 21 DAYS
     Route: 042
     Dates: start: 20061117
  2. OXALIPLATIN [Suspect]
     Indication: LUNG ADENOCARCINOMA STAGE IV
     Dosage: 156 MG IV EVERY 21 DAYS
     Route: 042
     Dates: start: 20061206
  3. OXALIPLATIN [Suspect]
     Indication: LUNG ADENOCARCINOMA STAGE IV
     Dosage: 156 MG IV EVERY 21 DAYS
     Route: 042
     Dates: start: 20061227
  4. OXALIPLATIN [Suspect]
     Indication: LUNG ADENOCARCINOMA STAGE IV
     Dosage: 156 MG IV EVERY 21 DAYS
     Route: 042
     Dates: start: 20070117
  5. TAXOTERE [Suspect]
     Indication: LUNG ADENOCARCINOMA STAGE IV
     Dosage: 109 MG IV EVERY 21 DAYS
     Route: 042
     Dates: start: 20061117
  6. TAXOTERE [Suspect]
     Indication: LUNG ADENOCARCINOMA STAGE IV
     Dosage: 109 MG IV EVERY 21 DAYS
     Route: 042
     Dates: start: 20061206
  7. TAXOTERE [Suspect]
     Indication: LUNG ADENOCARCINOMA STAGE IV
     Dosage: 109 MG IV EVERY 21 DAYS
     Route: 042
     Dates: start: 20061227
  8. TAXOTERE [Suspect]
     Indication: LUNG ADENOCARCINOMA STAGE IV
     Dosage: 109 MG IV EVERY 21 DAYS
     Route: 042
     Dates: start: 20070117
  9. AVASTIN [Suspect]
     Indication: LUNG ADENOCARCINOMA STAGE IV
     Dosage: 853 MG IV EVERY 21 DAYS
     Route: 042
     Dates: start: 20061117
  10. AVASTIN [Suspect]
     Indication: LUNG ADENOCARCINOMA STAGE IV
     Dosage: 853 MG IV EVERY 21 DAYS
     Route: 042
     Dates: start: 20061206
  11. AVASTIN [Suspect]
     Indication: LUNG ADENOCARCINOMA STAGE IV
     Dosage: 853 MG IV EVERY 21 DAYS
     Route: 042
     Dates: start: 20061227
  12. AVASTIN [Suspect]
     Indication: LUNG ADENOCARCINOMA STAGE IV
     Dosage: 853 MG IV EVERY 21 DAYS
     Route: 042
     Dates: start: 20070117
  13. SINGULAIR [Concomitant]
  14. DEXAMETHASONE [Concomitant]
  15. FLUCONAZOLE [Concomitant]
  16. ATIVAN [Concomitant]
  17. COMPAZINE [Concomitant]
  18. BENADRYL [Concomitant]
  19. LISINOPRIL [Concomitant]

REACTIONS (10)
  - ABDOMINAL PAIN [None]
  - BLOOD PRESSURE DECREASED [None]
  - DEHYDRATION [None]
  - LOBAR PNEUMONIA [None]
  - NAUSEA [None]
  - PULMONARY OEDEMA [None]
  - RECTAL PERFORATION [None]
  - RENAL FAILURE [None]
  - SEPSIS [None]
  - VOMITING [None]
